FAERS Safety Report 10362615 (Version 1)
Quarter: 2014Q3

REPORT INFORMATION
  Report Type: Spontaneous
  Country: JP (occurrence: None)
  Receive Date: 20140728
  Receipt Date: 20140728
  Transmission Date: 20150326
  Serious: Yes (Hospitalization)
  Sender: FDA-Public Use
  Company Number: JP-20140227

PATIENT
  Age: 73 Year
  Sex: Male

DRUGS (3)
  1. FARMORUBICIN [Suspect]
     Active Substance: EPIRUBICIN HYDROCHLORIDE
     Indication: THERAPEUTIC EMBOLISATION
     Dosage: UNK (25 MG), INTRA-ARTERIAL
     Route: 013
  2. MITOMYCIN (MITOMYCIN) (MITOMYCIN) [Suspect]
     Active Substance: MITOMYCIN
     Indication: THERAPEUTIC EMBOLISATION
     Route: 013
  3. LIPIODOL ULTRA-FLUIDE [Suspect]
     Active Substance: ETHIODIZED OIL
     Indication: THERAPEUTIC EMBOLISATION
     Dosage: UNK (3 ML), INTRA-ARTERIAL ?
     Route: 013
     Dates: start: 20130719, end: 20130719

REACTIONS (6)
  - Liver carcinoma ruptured [None]
  - Anaemia [None]
  - Disease progression [None]
  - Hepatic haematoma [None]
  - Abdominal pain upper [None]
  - Blood pressure systolic decreased [None]

NARRATIVE: CASE EVENT DATE: 20130719
